FAERS Safety Report 11130240 (Version 1)
Quarter: 2015Q2

REPORT INFORMATION
  Report Type: Spontaneous
  Country: JP (occurrence: JP)
  Receive Date: 20150522
  Receipt Date: 20150522
  Transmission Date: 20150821
  Serious: Yes (Other)
  Sender: FDA-Public Use
  Company Number: JP-CIPLA LTD.-2015JP03921

PATIENT

DRUGS (7)
  1. BUSLFAN [Suspect]
     Active Substance: BUSULFAN
     Indication: RETINOBLASTOMA
     Dosage: 0.8 TO 1.2 MG/KG
     Route: 042
  2. ETOPOSIDE INJECTION 6 MG/ ML [Suspect]
     Active Substance: ETOPOSIDE
     Indication: RETINOBLASTOMA
     Route: 065
  3. VINCRISTINE [Suspect]
     Active Substance: VINCRISTINE
     Indication: RETINOBLASTOMA
     Route: 065
  4. CYCLOPHOSPHAMIDE. [Suspect]
     Active Substance: CYCLOPHOSPHAMIDE
     Indication: RETINOBLASTOMA
     Route: 065
  5. MELPHALAN [Suspect]
     Active Substance: MELPHALAN
     Indication: RETINOBLASTOMA
     Dosage: 140 MG/M2, UNK
     Route: 042
  6. DOXORUBICIN [Suspect]
     Active Substance: DOXORUBICIN
  7. CARBOPLATIN. [Suspect]
     Active Substance: CARBOPLATIN
     Indication: RETINOBLASTOMA
     Route: 065

REACTIONS (4)
  - Metastases to central nervous system [Unknown]
  - Metastasis [Unknown]
  - Metastases to bone [Unknown]
  - Mucosal inflammation [Unknown]
